FAERS Safety Report 4388389-3 (Version None)
Quarter: 2004Q3

REPORT INFORMATION
  Report Type: 
  Country: None (occurrence: None)
  Receive Date: 20040701
  Receipt Date: 20040601
  Transmission Date: 20050211
  Serious: Yes (Other)
  Sender: FDA-Public Use
  Company Number: DE-AMGEN-US080501

PATIENT
  Sex: Female

DRUGS (4)
  1. ENBREL [Suspect]
     Indication: JUVENILE ARTHRITIS
     Route: 058
     Dates: start: 20040302, end: 20040528
  2. METHOTREXATE [Concomitant]
     Dates: start: 19990101
  3. PREDNISOLONE [Concomitant]
     Dates: start: 19800101
  4. AREDIA [Concomitant]
     Dates: start: 20040401

REACTIONS (2)
  - VISION BLURRED [None]
  - VISUAL DISTURBANCE [None]
